FAERS Safety Report 11383300 (Version 1)
Quarter: 2015Q3

REPORT INFORMATION
  Report Type: Spontaneous
  Country: US (occurrence: US)
  Receive Date: 20150814
  Receipt Date: 20150814
  Transmission Date: 20151125
  Serious: Yes (Other)
  Sender: FDA-Public Use
  Company Number: US-BAYER-2015-397329

PATIENT
  Sex: Female

DRUGS (1)
  1. CAMPHO-PHENIQUE ANTISEPTIC COLD SORE GEL WITH DA [Suspect]
     Active Substance: CAMPHOR\PHENOL
     Dosage: 1 DOSE, ONCE
     Route: 045
     Dates: start: 20150805, end: 20150805

REACTIONS (2)
  - Nasal discomfort [Recovered/Resolved]
  - Product use issue [None]

NARRATIVE: CASE EVENT DATE: 20150805
